FAERS Safety Report 6383957-1 (Version None)
Quarter: 2009Q4

REPORT INFORMATION
  Report Type: 
  Country: None (occurrence: None)
  Receive Date: 20091001
  Receipt Date: 20090928
  Transmission Date: 20100525
  Serious: Yes (Other)
  Sender: FDA-Public Use
  Company Number: US-ROXANE LABORATORIES, INC.-2009-RO-01005RO

PATIENT
  Age: 24 Year

DRUGS (2)
  1. LAMOTRIGINE [Suspect]
     Indication: EPILEPSY
     Dosage: 300 MG
  2. ALBUTEROL [Suspect]

REACTIONS (1)
  - WITHDRAWAL SYNDROME [None]
